FAERS Safety Report 14987496 (Version 1)
Quarter: 2018Q2

REPORT INFORMATION
  Report Type: Spontaneous
  Country: CH (occurrence: CH)
  Receive Date: 20180608
  Receipt Date: 20180608
  Transmission Date: 20180711
  Serious: Yes (Hospitalization)
  Sender: FDA-Public Use
  Company Number: CH-BEH-2018091430

PATIENT
  Age: 71 Year
  Sex: Male

DRUGS (4)
  1. IDELALISIB [Suspect]
     Active Substance: IDELALISIB
     Indication: LYMPHOMA
     Dosage: UNK
     Route: 048
     Dates: start: 201704
  2. PRIVIGEN [Suspect]
     Active Substance: HUMAN IMMUNOGLOBULIN G
     Dosage: 40 G, TOT
     Route: 041
     Dates: start: 20180322, end: 20180322
  3. PRIVIGEN [Suspect]
     Active Substance: HUMAN IMMUNOGLOBULIN G
     Indication: PRODUCT USED FOR UNKNOWN INDICATION
     Dosage: 40 G, TOT
     Route: 041
     Dates: start: 20180308, end: 20180308
  4. IDELALISIB [Suspect]
     Active Substance: IDELALISIB
     Dosage: 100 MG, QD
     Route: 048

REACTIONS (4)
  - Diarrhoea [Unknown]
  - Abscess intestinal [Unknown]
  - Colitis [Unknown]
  - Cryptitis [Unknown]

NARRATIVE: CASE EVENT DATE: 20180514
